FAERS Safety Report 15350924 (Version 1)
Quarter: 2018Q3

REPORT INFORMATION
  Report Type: Spontaneous
  Country: US (occurrence: US)
  Receive Date: 20180829
  Receipt Date: 20180829
  Transmission Date: 20181010
  Serious: Yes (Life-Threatening)
  Sender: FDA-Public Use
  Company Number: None

PATIENT
  Age: 30 Year
  Sex: Female
  Weight: 80.74 kg

DRUGS (3)
  1. BUPROPION. [Suspect]
     Active Substance: BUPROPION
     Indication: DEPRESSION
     Route: 048
     Dates: start: 20180511, end: 20180615
  2. BUPROPION. [Suspect]
     Active Substance: BUPROPION
     Indication: ANXIETY
     Route: 048
     Dates: start: 20180511, end: 20180615
  3. BUPROPION. [Suspect]
     Active Substance: BUPROPION
     Indication: ANXIETY

REACTIONS (4)
  - Nausea [None]
  - Vomiting [None]
  - Therapy cessation [None]
  - Suicide attempt [None]

NARRATIVE: CASE EVENT DATE: 20180615
